FAERS Safety Report 4599890-1 (Version None)
Quarter: 2005Q1

REPORT INFORMATION
  Report Type: 
  Country: None (occurrence: None)
  Receive Date: 20050303
  Receipt Date: 20050216
  Transmission Date: 20050727
  Serious: Yes (Death)
  Sender: FDA-Public Use
  Company Number: JP_050205906

PATIENT
  Age: 57 Year
  Sex: Male

DRUGS (3)
  1. ONCOVIN [Suspect]
     Indication: MULTIPLE MYELOMA
     Dosage: 0.4 MG OTHER
     Route: 050
     Dates: end: 20050114
  2. ADRIACIN (DOXORUBICIN HYDROCHLORIDE) [Concomitant]
  3. DECADRON [Concomitant]

REACTIONS (3)
  - CARDIAC FAILURE ACUTE [None]
  - PNEUMONITIS [None]
  - RESPIRATORY FAILURE [None]
